FAERS Safety Report 18578590 (Version 1)
Quarter: 2020Q4

REPORT INFORMATION
  Report Type: Spontaneous
  Country: DK (occurrence: DK)
  Receive Date: 20201204
  Receipt Date: 20201204
  Transmission Date: 20210114
  Serious: Yes (Other)
  Sender: FDA-Public Use
  Company Number: DK-TEVA-2020-DK-1854491

PATIENT
  Age: 29 Year
  Sex: Female

DRUGS (4)
  1. ALLOPURINOL. [Suspect]
     Active Substance: ALLOPURINOL
     Indication: INFLAMMATORY BOWEL DISEASE
     Dosage: 100 MG
     Route: 048
     Dates: start: 20180514
  2. MESALAZINE [Concomitant]
     Active Substance: MESALAMINE
     Indication: INFLAMMATORY BOWEL DISEASE
     Dosage: 2400 MG
     Route: 048
     Dates: start: 20170102
  3. COLGATE DURAPHAT [Concomitant]
     Active Substance: SODIUM FLUORIDE
     Indication: DENTAL CARIES
     Dosage: STRENGTH: 5 MG/G, 3 DF
     Route: 004
     Dates: start: 20190425
  4. AZATIOPRIN MYLAN [Suspect]
     Active Substance: AZATHIOPRINE
     Indication: INFLAMMATORY BOWEL DISEASE
     Dosage: 50 MG
     Route: 048
     Dates: start: 20170905

REACTIONS (2)
  - Maternal exposure during pregnancy [Recovered/Resolved]
  - Abortion missed [Not Recovered/Not Resolved]

NARRATIVE: CASE EVENT DATE: 20200831
